FAERS Safety Report 25652117 (Version 2)
Quarter: 2025Q4

REPORT INFORMATION
  Report Type: Report from Study
  Country: US (occurrence: US)
  Receive Date: 20250806
  Receipt Date: 20251028
  Transmission Date: 20260117
  Serious: No
  Sender: BIOGEN
  Company Number: US-BIOGEN-2025BI01319157

PATIENT
  Age: 37 Year
  Sex: Female

DRUGS (3)
  1. ZURZUVAE [Suspect]
     Active Substance: ZURANOLONE
     Indication: Perinatal depression
     Dosage: DOSAGE TEXT:TAKE 2 CAPSULES ORALLY, ONCE A DAY IN THE EVENING, WITH FAT-CONTAINING FOOD FOR 14 DAYS
     Dates: start: 20250731, end: 20250814
  2. ABILIFY [Concomitant]
     Active Substance: ARIPIPRAZOLE
     Indication: Product used for unknown indication
     Dates: start: 20250721
  3. TRINTELLIX [Concomitant]
     Active Substance: VORTIOXETINE HYDROBROMIDE
     Indication: Product used for unknown indication
     Dates: start: 20250721

REACTIONS (2)
  - Somnolence [Recovered/Resolved]
  - Fatigue [Recovered/Resolved]

NARRATIVE: CASE EVENT DATE: 20250731
